FAERS Safety Report 20173977 (Version 1)
Quarter: 2021Q4

REPORT INFORMATION
  Report Type: Spontaneous
  Country: CA (occurrence: CA)
  Receive Date: 20211213
  Receipt Date: 20211213
  Transmission Date: 20220303
  Serious: Yes (Life-Threatening, Hospitalization)
  Sender: FDA-Public Use
  Company Number: CA-TEVA-2021-CA-1986075

PATIENT
  Age: 5 Year
  Sex: Male
  Weight: 18 kg

DRUGS (18)
  1. METHOTREXATE [Suspect]
     Active Substance: METHOTREXATE
     Indication: Acute lymphocytic leukaemia recurrent
     Route: 037
  2. VINCRISTINE SULFATE [Suspect]
     Active Substance: VINCRISTINE SULFATE
     Indication: Acute lymphocytic leukaemia recurrent
     Route: 041
  3. MITOXANTRONE [Suspect]
     Active Substance: MITOXANTRONE HYDROCHLORIDE
     Indication: Acute lymphocytic leukaemia recurrent
     Route: 041
  4. ACETAMINOPHEN [Concomitant]
     Active Substance: ACETAMINOPHEN
  5. ALLOPURINOL [Concomitant]
     Active Substance: ALLOPURINOL
  6. DEXAMETHASONE [Concomitant]
     Active Substance: DEXAMETHASONE
  7. FAMOTIDINE [Concomitant]
     Active Substance: FAMOTIDINE
  8. FUROSEMIDE [Concomitant]
     Active Substance: FUROSEMIDE
  9. MORPHINE [Concomitant]
     Active Substance: MORPHINE
  10. MYCAMINE [Concomitant]
     Active Substance: MICAFUNGIN SODIUM
  11. NIFEDIPINE [Concomitant]
     Active Substance: NIFEDIPINE
  12. ONDANSETRON [Concomitant]
     Active Substance: ONDANSETRON
  13. POLYETHYLENE GLYCOL [Concomitant]
     Active Substance: POLYETHYLENE GLYCOL
  14. POTASSIUM [Concomitant]
     Active Substance: POTASSIUM
  15. RANITIDINE [Concomitant]
     Active Substance: RANITIDINE
  16. SULFAMETHOXAZOLE\TRIMETHOPRIM [Concomitant]
     Active Substance: SULFAMETHOXAZOLE\TRIMETHOPRIM
  17. VANCOMYCIN [Concomitant]
     Active Substance: VANCOMYCIN
  18. ZINECARD [Concomitant]
     Active Substance: DEXRAZOXANE HYDROCHLORIDE

REACTIONS (1)
  - Aplastic anaemia [Recovered/Resolved]
